FAERS Safety Report 11148208 (Version 1)
Quarter: 2015Q2

REPORT INFORMATION
  Report Type: Spontaneous
  Country: CA (occurrence: None)
  Receive Date: 20150527
  Receipt Date: 20150527
  Transmission Date: 20150821
  Serious: Yes (Hospitalization)
  Sender: FDA-Public Use
  Company Number: 2015FE01637

PATIENT
  Age: 89 Year
  Sex: Male

DRUGS (1)
  1. DEGARELIX (DEGARELIX) POWDER AND SOLVENT FOR SOLUTION FOR INJECTION [Suspect]
     Active Substance: DEGARELIX
     Indication: PROSTATE CANCER
     Route: 058
     Dates: start: 20121020

REACTIONS (2)
  - Vomiting [None]
  - Gastroenteritis viral [None]

NARRATIVE: CASE EVENT DATE: 20150515
